FAERS Safety Report 20978997 (Version 2)
Quarter: 2022Q2

REPORT INFORMATION
  Report Type: Report from Study
  Country: CA (occurrence: None)
  Receive Date: 20220619
  Receipt Date: 20220629
  Transmission Date: 20220721
  Serious: Yes (Other)
  Sender: FDA-Public Use
  Company Number: CA-ROCHE-3113238

PATIENT
  Age: 44 Year
  Sex: Female
  Weight: 54.5 kg

DRUGS (26)
  1. OCRELIZUMAB [Suspect]
     Active Substance: OCRELIZUMAB
     Indication: Primary progressive multiple sclerosis
     Dosage: SUBSEQUENT DOSES WERE RECEIVED ON: 14/AUG/2012, 29/JAN/2013,10/JUL/2013, 30/JUL/2013, 18/DEC/2013, 0
     Route: 042
     Dates: start: 20120731, end: 20120731
  2. OCRELIZUMAB [Suspect]
     Active Substance: OCRELIZUMAB
     Indication: Primary progressive multiple sclerosis
     Dosage: SUBSEQUENT DOSES WERE RECEIVED ON: 19/APR/2016, 27/SEP/2016, 13/OCT/2016, 07/MAR/2017, 21/MAR/2017,
     Route: 042
     Dates: start: 20160407, end: 20160407
  3. BENADRYL [Concomitant]
     Active Substance: DIPHENHYDRAMINE HYDROCHLORIDE
     Dosage: 31/JUL/2012, 14/AUG/2012, 15/JAN/2013, 29/JAN/2013, 10/JUL/2013, 30/JUL/2013, 18/DEC/2013, 07/JAN/20
     Dates: start: 20140603
  4. CETIRIZINE [Concomitant]
     Active Substance: CETIRIZINE HYDROCHLORIDE
     Dates: start: 20220405
  5. METHYLPREDNISOLONE [Concomitant]
     Active Substance: METHYLPREDNISOLONE
     Dosage: 31/JUL/2012, 14/AUG/2012, 15/JAN/2013, 29/JAN/2013, 10/JUL/2013, 30/JUL/2013, 18/DEC/2013, 07/JAN/20
     Dates: start: 20220405
  6. MONTELUKAST [Concomitant]
     Active Substance: MONTELUKAST SODIUM
     Dates: start: 20220405
  7. TYLENOL [Concomitant]
     Active Substance: ACETAMINOPHEN
     Indication: Headache
     Dosage: 07/APR/2013,15/JUL/2021,19/APR/2016
     Dates: start: 20220405
  8. TYLENOL [Concomitant]
     Active Substance: ACETAMINOPHEN
     Dosage: 17/JUN/2014, 25/NOV/2014, 09/DEC/2014, 06/MAY/2015, 22/MAY/2015, 21/OCT/2015, 10/NOV/2015, 27/SEP/20
     Dates: start: 20140603
  9. TYLENOL [Concomitant]
     Active Substance: ACETAMINOPHEN
     Dosage: 14/AUG/2012, 31/JUL/2012, 15/JAN/2013, 29/JAN/2013, 10/JUL/2013, 30/JUL/2013, 18/DEC/2013, 13/OCT/20
     Dates: start: 20140107
  10. TYLENOL [Concomitant]
     Active Substance: ACETAMINOPHEN
     Dosage: //2000
     Dates: start: 20120802, end: 20120805
  11. AZITHROMYCIN [Concomitant]
     Active Substance: AZITHROMYCIN
     Indication: Pertussis
     Dates: start: 201908, end: 201908
  12. AZITHROMYCIN [Concomitant]
     Active Substance: AZITHROMYCIN
     Indication: Pneumonia
     Dates: start: 20180909, end: 20180909
  13. BACLOFEN [Concomitant]
     Active Substance: BACLOFEN
     Indication: Musculoskeletal stiffness
     Dates: start: 20210203, end: 20210209
  14. BACLOFEN [Concomitant]
     Active Substance: BACLOFEN
     Dates: start: 20170613, end: 201808
  15. BACLOFEN [Concomitant]
     Active Substance: BACLOFEN
     Dates: start: 20210210, end: 20210217
  16. BACLOFEN [Concomitant]
     Active Substance: BACLOFEN
     Dates: start: 20170613, end: 201808
  17. BACLOFEN [Concomitant]
     Active Substance: BACLOFEN
     Dates: start: 20210218
  18. BACLOFEN [Concomitant]
     Active Substance: BACLOFEN
     Dates: start: 20201118, end: 20210121
  19. BACLOFEN [Concomitant]
     Active Substance: BACLOFEN
     Dates: start: 20210122, end: 20210202
  20. OXYGEN [Concomitant]
     Active Substance: OXYGEN
     Dosage: DOSE: 3 OTHER, L/MIN
     Dates: start: 20210715, end: 20210715
  21. VESICARE [Concomitant]
     Active Substance: SOLIFENACIN SUCCINATE
     Dates: start: 201805, end: 201908
  22. VESICARE [Concomitant]
     Active Substance: SOLIFENACIN SUCCINATE
     Dates: start: 20200518
  23. VESICARE [Concomitant]
     Active Substance: SOLIFENACIN SUCCINATE
     Dates: start: 20170321, end: 201805
  24. ERGOCALCIFEROL [Concomitant]
     Active Substance: ERGOCALCIFEROL
     Dosage: 01/NOV/2012-11/OCT/2013
     Dates: start: 20120401, end: 20120901
  25. ERGOCALCIFEROL [Concomitant]
     Active Substance: ERGOCALCIFEROL
     Dates: start: 20131011
  26. PFIZER-BIONTECH COVID-19 VACCINE [Concomitant]
     Active Substance: TOZINAMERAN
     Dosage: NEXT DOSE WAS RECEIVED ON 29/APR/2021, 08/JUN/2021
     Dates: start: 20211109, end: 20211109

REACTIONS (1)
  - Asthma [Recovered/Resolved]

NARRATIVE: CASE EVENT DATE: 20210715
